FAERS Safety Report 5397198-8 (Version None)
Quarter: 2007Q3

REPORT INFORMATION
  Report Type: 
  Country: None (occurrence: None)
  Receive Date: 20070725
  Receipt Date: 20070718
  Transmission Date: 20080115
  Serious: No
  Sender: FDA-Public Use
  Company Number: JP-PFIZER INC-2007058006

PATIENT
  Age: 10 Year
  Sex: Female

DRUGS (4)
  1. SOLU-MEDROL [Suspect]
  2. PREDONINE [Suspect]
  3. CYCLOPHOSPHAMIDE [Concomitant]
  4. CYCLOSPORINE [Concomitant]

REACTIONS (1)
  - NO ADVERSE REACTION [None]
